FAERS Safety Report 14969908 (Version 1)
Quarter: 2018Q2

REPORT INFORMATION
  Report Type: Spontaneous
  Country: US (occurrence: US)
  Receive Date: 20180604
  Receipt Date: 20180604
  Transmission Date: 20180711
  Serious: Yes (Other)
  Sender: FDA-Public Use
  Company Number: US-TEVA-2018-US-897934

PATIENT
  Age: 15 Year
  Sex: Female

DRUGS (1)
  1. CLARAVIS [Suspect]
     Active Substance: ISOTRETINOIN
     Indication: SKIN MASS
     Route: 065
     Dates: start: 201801

REACTIONS (2)
  - Rash [Unknown]
  - Lyme disease [Unknown]

NARRATIVE: CASE EVENT DATE: 201805
